FAERS Safety Report 7931115-9 (Version None)
Quarter: 2011Q4

REPORT INFORMATION
  Report Type: 
  Country: None (occurrence: None)
  Receive Date: 20111121
  Receipt Date: 20111118
  Transmission Date: 20120403
  Serious: Yes (Other)
  Sender: FDA-Public Use
  Company Number: US-PFIZER INC-2011283286

PATIENT
  Sex: Female
  Weight: 59 kg

DRUGS (2)
  1. ATENOLOL [Concomitant]
     Indication: HYPERTENSION
     Dosage: 25 MG, DAILY
  2. LYRICA [Suspect]
     Indication: SPINAL FUSION SURGERY
     Dosage: 75 MG, 2X/DAY
     Route: 048
     Dates: start: 20111001, end: 20111001

REACTIONS (5)
  - OEDEMA PERIPHERAL [None]
  - DYSPNOEA [None]
  - VISION BLURRED [None]
  - HEART RATE DECREASED [None]
  - HEART RATE INCREASED [None]
